FAERS Safety Report 8702404 (Version 2)
Quarter: 2013Q2

REPORT INFORMATION
  Report Type: Spontaneous
  Country: DK (occurrence: DK)
  Receive Date: 20120803
  Receipt Date: 20130528
  Transmission Date: 20140414
  Serious: Yes (Death)
  Sender: FDA-Public Use
  Company Number: DK-CELGENEUS-044-21880-12073183

PATIENT
  Age: 55 Year
  Sex: Male
  Weight: 90 kg

DRUGS (16)
  1. REVLIMID [Suspect]
     Indication: PLASMA CELL MYELOMA RECURRENT
     Dosage: 25 MILLIGRAM
     Route: 048
     Dates: start: 20090406, end: 20101020
  2. REVLIMID [Suspect]
     Dosage: 15 MILLIGRAM
     Route: 048
     Dates: start: 201110
  3. THALIDOMIDE [Suspect]
     Indication: DISEASE PROGRESSION
     Route: 048
     Dates: start: 201010, end: 201104
  4. THALIDOMIDE [Suspect]
     Route: 048
     Dates: start: 201107
  5. DEXAMETHASONE [Concomitant]
     Indication: PLASMA CELL MYELOMA RECURRENT
     Route: 065
     Dates: start: 200904, end: 20101020
  6. DEXAMETHASONE [Concomitant]
     Route: 065
     Dates: start: 201010, end: 201104
  7. DEXAMETHASONE [Concomitant]
     Route: 065
     Dates: start: 201105, end: 201107
  8. DEXAMETHASONE [Concomitant]
     Route: 065
     Dates: start: 201107
  9. DEXAMETHASONE [Concomitant]
     Route: 065
     Dates: start: 201110
  10. BORTEZOMIB [Concomitant]
     Indication: DISEASE PROGRESSION
     Dosage: 1.3 MILLIGRAM/SQ. METER
     Route: 065
     Dates: start: 201010, end: 201104
  11. BORTEZOMIB [Concomitant]
     Dosage: 1.3 MILLIGRAM/SQ. METER
     Route: 065
     Dates: start: 201105, end: 201107
  12. BORTEZOMIB [Concomitant]
     Dosage: 1.3 MILLIGRAM/SQ. METER
     Route: 065
     Dates: start: 201110
  13. ADRIAMYCIN [Concomitant]
     Indication: DISEASE PROGRESSION
     Dosage: 50 MILLIGRAM/SQ. METER
     Route: 041
     Dates: start: 201105, end: 201107
  14. CYCLOPHOSPHAMID [Concomitant]
     Indication: DISEASE PROGRESSION
     Dosage: 750 MILLIGRAM/SQ. METER
     Route: 041
     Dates: start: 201105, end: 201107
  15. BENDAMUSTINE [Concomitant]
     Indication: DISEASE PROGRESSION
     Route: 065
     Dates: start: 201107
  16. DOXORUBICIN [Concomitant]
     Indication: DISEASE PROGRESSION
     Route: 065
     Dates: start: 201107

REACTIONS (1)
  - Acute myeloid leukaemia [Fatal]
